FAERS Safety Report 8954124 (Version 1)
Quarter: 2012Q4

REPORT INFORMATION
  Report Type: 
  Country: US (occurrence: US)
  Receive Date: 20121207
  Receipt Date: 20121207
  Transmission Date: 20130627
  Serious: No
  Sender: FDA-Public Use
  Company Number: US-GLAXOSMITHKLINE-A0956330A

PATIENT
  Sex: Female

DRUGS (1)
  1. TOPOTECAN [Suspect]
     Indication: OVARIAN CANCER
     Route: 065

REACTIONS (2)
  - Drug ineffective [Unknown]
  - Carbohydrate antigen 125 increased [Unknown]
